FAERS Safety Report 15371233 (Version 1)
Quarter: 2018Q3

REPORT INFORMATION
  Report Type: Spontaneous
  Country: US (occurrence: US)
  Receive Date: 20180905
  Receipt Date: 20180905
  Transmission Date: 20181010
  Serious: Yes (Disabling)
  Sender: FDA-Public Use
  Company Number: None

PATIENT
  Age: 55 Year
  Sex: Male
  Weight: 121.5 kg

DRUGS (7)
  1. CIALIS [Suspect]
     Active Substance: TADALAFIL
     Indication: PROSTATIC DISORDER
     Dosage: ?          QUANTITY:1 DF DOSAGE FORM;?
     Route: 048
     Dates: start: 20130930, end: 20180905
  2. TESTOSTERONE INJECTIONS [Concomitant]
     Active Substance: TESTOSTERONE
  3. CADUET [Concomitant]
     Active Substance: AMLODIPINE BESYLATE\ATORVASTATIN CALCIUM
  4. TERAZOSIN [Concomitant]
     Active Substance: TERAZOSIN\TERAZOSIN HYDROCHLORIDE
  5. MENS MULTI VITAMIN [Concomitant]
  6. CIALIS [Suspect]
     Active Substance: TADALAFIL
     Indication: ERECTILE DYSFUNCTION
     Dosage: ?          QUANTITY:1 DF DOSAGE FORM;?
     Route: 048
     Dates: start: 20130930, end: 20180905
  7. LOSARTAN. [Concomitant]
     Active Substance: LOSARTAN

REACTIONS (1)
  - Tinnitus [None]

NARRATIVE: CASE EVENT DATE: 20180323
